FAERS Safety Report 4886789-6 (Version None)
Quarter: 2006Q1

REPORT INFORMATION
  Report Type: 
  Country: None (occurrence: None)
  Receive Date: 20060120
  Receipt Date: 20050901
  Transmission Date: 20060701
  Serious: Yes (Death, Hospitalization, Disabling)
  Sender: FDA-Public Use
  Company Number: GBWYE947502SEP05

PATIENT
  Sex: Female

DRUGS (6)
  1. ENBREL [Suspect]
     Indication: RHEUMATOID ARTHRITIS
     Dosage: UNKNOWN
     Route: 058
     Dates: start: 20040413, end: 20050815
  2. ATENOLOL [Concomitant]
     Route: 065
  3. CO-PROXAMOL [Concomitant]
     Route: 065
  4. OMEPRAZOLE [Concomitant]
     Route: 065
  5. ROFECOXIB [Concomitant]
     Route: 065
  6. THYROXINE SODIUM [Concomitant]
     Route: 065

REACTIONS (2)
  - BRAIN NEOPLASM [None]
  - DIPLOPIA [None]
